FAERS Safety Report 15084254 (Version 5)
Quarter: 2018Q3

REPORT INFORMATION
  Report Type: Spontaneous
  Country: US (occurrence: US)
  Receive Date: 20180628
  Receipt Date: 20180919
  Transmission Date: 20181010
  Serious: Yes (Congenital Anomaly, Other)
  Sender: FDA-Public Use
  Company Number: PHEH2018US026222

PATIENT
  Sex: Female

DRUGS (1)
  1. ZOFRAN [Suspect]
     Active Substance: ONDANSETRON HYDROCHLORIDE
     Indication: FOETAL EXPOSURE DURING PREGNANCY
     Dosage: MOTHER DOSE: 8 MG, Q6H
     Route: 064

REACTIONS (29)
  - Congenital jaw malformation [Unknown]
  - Kyphoscoliosis [Unknown]
  - Upper respiratory tract infection [Unknown]
  - Acute sinusitis [Unknown]
  - Conjunctivitis [Unknown]
  - Dysmorphism [Unknown]
  - Tricuspid valve incompetence [Unknown]
  - Developmental delay [Unknown]
  - Foetal exposure during pregnancy [Unknown]
  - Pharyngitis streptococcal [Unknown]
  - Coloboma [Unknown]
  - Cytogenetic abnormality [Unknown]
  - Tonsillitis [Unknown]
  - Ear pain [Unknown]
  - Cerumen impaction [Unknown]
  - Tympanic membrane perforation [Unknown]
  - Pulmonary valve incompetence [Unknown]
  - Deafness neurosensory [Unknown]
  - Developmental hip dysplasia [Unknown]
  - Glaucoma [Unknown]
  - Adenoiditis [Unknown]
  - Rhinitis [Unknown]
  - Otitis media acute [Unknown]
  - Influenza [Unknown]
  - Atrial septal defect [Unknown]
  - Scoliosis [Unknown]
  - Pyrexia [Unknown]
  - Skull malformation [Unknown]
  - Dental caries [Unknown]
